FAERS Safety Report 7762579-1 (Version None)
Quarter: 2011Q3

REPORT INFORMATION
  Report Type: 
  Country: None (occurrence: None)
  Receive Date: 20110920
  Receipt Date: 20110916
  Transmission Date: 20111222
  Serious: Yes (Hospitalization)
  Sender: FDA-Public Use
  Company Number: US-GLAXOSMITHKLINE-A0882805A

PATIENT
  Age: 64 Year
  Sex: Female
  Weight: 87.7 kg

DRUGS (15)
  1. ASPIRIN [Concomitant]
  2. ASCORBIC ACID [Concomitant]
  3. HYDROCHLOROTHIAZIDE [Concomitant]
  4. GLUCOPHAGE [Concomitant]
  5. LIPITOR [Concomitant]
  6. CRESTOR [Concomitant]
  7. GLUCOTROL XL [Concomitant]
  8. AVANDIA [Suspect]
     Indication: TYPE 2 DIABETES MELLITUS
     Dosage: 8MG PER DAY
     Route: 048
     Dates: start: 20010901, end: 20080501
  9. FERROUS SULFATE TAB [Concomitant]
  10. METFORMIN HCL [Concomitant]
  11. ISOSORBIDE MONONITRATE [Concomitant]
  12. TOPROL-XL [Concomitant]
  13. BENAZEPRIL HYDROCHLORIDE [Concomitant]
  14. LOTENSIN [Concomitant]
  15. CELEBREX [Concomitant]

REACTIONS (3)
  - CARDIAC DISORDER [None]
  - ANGINA PECTORIS [None]
  - CORONARY ARTERY DISEASE [None]
